FAERS Safety Report 9186921 (Version 2)
Quarter: 2013Q2

REPORT INFORMATION
  Report Type: Spontaneous
  Country: US (occurrence: US)
  Receive Date: 20130325
  Receipt Date: 20130515
  Transmission Date: 20140414
  Serious: Yes (Other)
  Sender: FDA-Public Use
  Company Number: US-ASTELLAS-2013US001356

PATIENT
  Age: 56 Year
  Sex: Female

DRUGS (1)
  1. PROGRAF [Suspect]
     Indication: HEART TRANSPLANT
     Dosage: 4 MG, BID
     Route: 048
     Dates: start: 20091124, end: 20130123

REACTIONS (10)
  - Post procedural haematoma [Unknown]
  - Renal impairment [Recovering/Resolving]
  - Convulsion [Unknown]
  - Urinary tract infection [Unknown]
  - Chronic hepatitis [Unknown]
  - Osteopenia [Unknown]
  - Oedema [Unknown]
  - Hypertension [Unknown]
  - Gastrooesophageal reflux disease [Unknown]
  - Hyperlipidaemia [Unknown]
